FAERS Safety Report 23447582 (Version 1)
Quarter: 2024Q1

REPORT INFORMATION
  Report Type: Spontaneous
  Country: NL (occurrence: NL)
  Receive Date: 20240126
  Receipt Date: 20240126
  Transmission Date: 20240410
  Serious: Yes (Other)
  Sender: FDA-Public Use
  Company Number: None

PATIENT
  Age: 17 Year
  Sex: Female
  Weight: 72 kg

DRUGS (1)
  1. LOCOID [Suspect]
     Active Substance: HYDROCORTISONE BUTYRATE
     Indication: Eczema
     Dosage: 2 TIMES A DAY
     Route: 065
     Dates: start: 19900101, end: 20210901

REACTIONS (1)
  - Steroid withdrawal syndrome [Not Recovered/Not Resolved]
